FAERS Safety Report 12885997 (Version 2)
Quarter: 2017Q3

REPORT INFORMATION
  Report Type: Report from Study
  Country: None (occurrence: BR)
  Receive Date: 20161026
  Receipt Date: 20170719
  Transmission Date: 20171127
  Serious: Yes (Other)
  Sender: FDA-Public Use
  Company Number: BR-ABBVIE-16P-020-1763587-00

PATIENT
  Age: 38 Year
  Sex: Female
  Weight: 76 kg

DRUGS (11)
  1. FUMARATE (COMPOUNDED) [Concomitant]
     Indication: ANAEMIA
  2. VITAMIN D (COMPOUNDED) 5000 IU [Concomitant]
     Indication: PRODUCT USED FOR UNKNOWN INDICATION
  3. MATERNA [Concomitant]
     Active Substance: MINERALS\VITAMINS
     Indication: VITAMIN SUPPLEMENTATION
     Dosage: TOTAL DRUG DURATION: OVER 8 YEARS
  4. SYNTHROID [Suspect]
     Active Substance: LEVOTHYROXINE SODIUM
     Indication: HYPOTHYROIDISM
     Route: 048
     Dates: start: 2012
  5. SYNTHROID [Suspect]
     Active Substance: LEVOTHYROXINE SODIUM
     Route: 048
  6. SYNTHROID [Suspect]
     Active Substance: LEVOTHYROXINE SODIUM
     Route: 048
  7. SYNTHROID [Suspect]
     Active Substance: LEVOTHYROXINE SODIUM
     Route: 048
     Dates: end: 201506
  8. SYNTHROID [Suspect]
     Active Substance: LEVOTHYROXINE SODIUM
     Route: 048
     Dates: start: 2015, end: 201608
  9. SYNTHROID [Suspect]
     Active Substance: LEVOTHYROXINE SODIUM
     Route: 048
  10. MOTHER VITAMIN [Concomitant]
     Indication: VITAMIN SUPPLEMENTATION
  11. NORIPURUM [Concomitant]
     Active Substance: IRON POLYMALTOSE
     Indication: ANAEMIA
     Dosage: DOSAGE TEXT: PER WEEK
     Route: 042

REACTIONS (3)
  - Metabolic surgery [Recovered/Resolved]
  - Mineral deficiency [Recovered/Resolved]
  - Hypovitaminosis [Recovered/Resolved]

NARRATIVE: CASE EVENT DATE: 201506
